FAERS Safety Report 8975078 (Version 2)
Quarter: 2013Q1

REPORT INFORMATION
  Report Type: Spontaneous
  Country: BR (occurrence: BR)
  Receive Date: 20121219
  Receipt Date: 20130315
  Transmission Date: 20140127
  Serious: Yes (Life-Threatening, Other)
  Sender: FDA-Public Use
  Company Number: PHHY2012BR116114

PATIENT
  Sex: Male

DRUGS (2)
  1. FORASEQ [Suspect]
  2. SERETIDE [Suspect]

REACTIONS (3)
  - Coma [Recovered/Resolved]
  - Pneumonia [Recovered/Resolved]
  - Weight decreased [Recovered/Resolved]
